FAERS Safety Report 4890647-0 (Version None)
Quarter: 2006Q1

REPORT INFORMATION
  Report Type: 
  Country: None (occurrence: None)
  Receive Date: 20060125
  Receipt Date: 20050531
  Transmission Date: 20060701
  Serious: No
  Sender: FDA-Public Use
  Company Number: US-BRISTOL-MYERS SQUIBB COMPANY-12989729

PATIENT
  Age: 60 Year
  Sex: Female

DRUGS (1)
  1. CARDIOLITE [Suspect]
     Indication: EXERCISE TEST
     Route: 042
     Dates: start: 20050526, end: 20050526

REACTIONS (1)
  - RASH VESICULAR [None]
